FAERS Safety Report 6243943-9 (Version None)
Quarter: 2009Q2

REPORT INFORMATION
  Report Type: 
  Country: None (occurrence: None)
  Receive Date: 20090623
  Receipt Date: 20090608
  Transmission Date: 20091009
  Serious: Yes (Hospitalization, Other)
  Sender: FDA-Public Use
  Company Number: TRP_06175_2009

PATIENT
  Sex: Female

DRUGS (19)
  1. INFERGEN [Suspect]
     Indication: HEPATITIS C
     Dosage: (15 UG QD)
     Dates: start: 20090318, end: 20090329
  2. COPEGUS [Suspect]
     Indication: DRUG USE FOR UNKNOWN INDICATION
     Dosage: (100 MG, 600 MG IN THE MORNING AND 400 MG IN THE EVENING)
     Dates: start: 20090318, end: 20090329
  3. XANAX [Concomitant]
  4. PREVACID [Concomitant]
  5. SPIRIVA [Concomitant]
  6. FLOVENT [Concomitant]
  7. PROVENTIL /00139501/ [Concomitant]
  8. ASPIRIN [Concomitant]
  9. FISH OIL [Concomitant]
  10. DAILY MULTIVITAMIN [Concomitant]
  11. CORAL CALCIUM [Concomitant]
  12. MELATONIN [Concomitant]
  13. ALEVE [Concomitant]
  14. PREMARIN [Concomitant]
  15. MILK THISTLE [Concomitant]
  16. NEXIUM [Concomitant]
  17. ASMANEX TWISTHALER [Concomitant]
  18. ATIVAN [Concomitant]
  19. TYLENOL (CAPLET) [Concomitant]

REACTIONS (16)
  - AMMONIA INCREASED [None]
  - ASTHENIA [None]
  - BLOOD GLUCOSE INCREASED [None]
  - CONVULSION [None]
  - COUGH [None]
  - DECREASED APPETITE [None]
  - DIZZINESS [None]
  - DRY SKIN [None]
  - HEADACHE [None]
  - LOSS OF CONSCIOUSNESS [None]
  - LYMPHOCYTOSIS [None]
  - NAUSEA [None]
  - PANCYTOPENIA [None]
  - REFUSAL OF TREATMENT BY PATIENT [None]
  - SYNCOPE [None]
  - TREMOR [None]
